FAERS Safety Report 14766976 (Version 2)
Quarter: 2019Q1

REPORT INFORMATION
  Report Type: Spontaneous
  Country: GB (occurrence: GB)
  Receive Date: 20180417
  Receipt Date: 20190306
  Transmission Date: 20190417
  Serious: Yes (Hospitalization, Disabling, Other)
  Sender: FDA-Public Use
  Company Number: GB-ACCORD-065550

PATIENT
  Age: 47 Year
  Sex: Male

DRUGS (1)
  1. CLOPIDOGREL [Suspect]
     Active Substance: CLOPIDOGREL BISULFATE
     Indication: TRANSIENT ISCHAEMIC ATTACK
     Dosage: STRENGTH: 75 MG
     Dates: start: 20170818, end: 201709

REACTIONS (3)
  - Blindness [Unknown]
  - Dark circles under eyes [Not Recovered/Not Resolved]
  - Visual impairment [Not Recovered/Not Resolved]
